FAERS Safety Report 26006462 (Version 1)
Quarter: 2025Q4

REPORT INFORMATION
  Report Type: Spontaneous
  Country: US (occurrence: None)
  Receive Date: 20251105
  Receipt Date: 20251105
  Transmission Date: 20260118
  Serious: No
  Sender: FDA-CTU
  Company Number: None

PATIENT
  Age: 72 Year
  Sex: Female
  Weight: 106.2 kg

DRUGS (1)
  1. MOUNJARO [Suspect]
     Active Substance: TIRZEPATIDE
     Dosage: WEEKLY SUBCUTANEOUS?
     Route: 058
     Dates: start: 20250707

REACTIONS (5)
  - Tremor [None]
  - Loss of personal independence in daily activities [None]
  - Therapy interrupted [None]
  - Drug intolerance [None]
  - Anxiety [None]
